FAERS Safety Report 5109786-4 (Version None)
Quarter: 2006Q3

REPORT INFORMATION
  Report Type: 
  Country: None (occurrence: None)
  Receive Date: 20060915
  Receipt Date: 20060829
  Transmission Date: 20061208
  Serious: Yes (Hospitalization)
  Sender: FDA-Public Use
  Company Number: 2006105710

PATIENT
  Age: 7 Year
  Sex: Male

DRUGS (4)
  1. FOSPHENYTOIN SODIUM [Suspect]
     Indication: EPILEPSY
     Dosage: 300 MG (100 MG, 3 IN 1 D), INTRAMUSCULAR
     Route: 030
     Dates: start: 20060726, end: 20060731
  2. STIRIPENTOL (STIRIPENTOL) [Suspect]
     Indication: EPILEPSY
     Dosage: 900 MG (1 IN 1 D), ORAL
     Route: 048
  3. TOPIRAMATE [Concomitant]
  4. CLOBAZAM (CLOBAZAM) [Concomitant]

REACTIONS (7)
  - APNOEA [None]
  - CHOREOATHETOSIS [None]
  - DRUG INTERACTION [None]
  - FEBRILE CONVULSION [None]
  - HYPERTHERMIA [None]
  - OVERDOSE [None]
  - STATUS EPILEPTICUS [None]
